FAERS Safety Report 4548516-1 (Version None)
Quarter: 2005Q1

REPORT INFORMATION
  Report Type: 
  Country: None (occurrence: None)
  Receive Date: 20050110
  Receipt Date: 20041230
  Transmission Date: 20050727
  Serious: Yes (Death, Life-Threatening, Hospitalization)
  Sender: FDA-Public Use
  Company Number: FR-GLAXOSMITHKLINE-B0363419A

PATIENT
  Age: 74 Year
  Sex: Female
  Weight: 60 kg

DRUGS (4)
  1. HYCAMTIN [Suspect]
     Dosage: 6.2MG WEEKLY
     Route: 042
     Dates: start: 20041103, end: 20041208
  2. DIAMICRON [Suspect]
     Route: 048
  3. XANAX [Suspect]
     Route: 048
  4. AMAREL [Suspect]
     Route: 048

REACTIONS (9)
  - ABDOMINAL PAIN [None]
  - DEHYDRATION [None]
  - DIARRHOEA [None]
  - PLATELET COUNT DECREASED [None]
  - RECTAL HAEMORRHAGE [None]
  - RENAL FAILURE [None]
  - SHOCK [None]
  - TACHYCARDIA [None]
  - VOMITING [None]
